FAERS Safety Report 16881782 (Version 2)
Quarter: 2019Q4

REPORT INFORMATION
  Report Type: Spontaneous
  Country: AT (occurrence: AT)
  Receive Date: 20191003
  Receipt Date: 20191009
  Transmission Date: 20200122
  Serious: Yes (Life-Threatening, Hospitalization, Other)
  Sender: FDA-Public Use
  Company Number: AT-PFIZER INC-2019423005

PATIENT
  Age: 53 Year
  Sex: Male
  Weight: 91 kg

DRUGS (3)
  1. XELJANZ [Suspect]
     Active Substance: TOFACITINIB CITRATE
     Indication: COLITIS ULCERATIVE
     Dosage: 5 MG, 2X/DAY
     Route: 048
     Dates: start: 20190418, end: 20190918
  2. PENTASA [Concomitant]
     Active Substance: MESALAMINE
     Dosage: 2 G, 1X/DAY
     Dates: start: 2014
  3. APREDNISLON [Concomitant]
     Active Substance: PREDNISOLONE
     Indication: COLITIS ULCERATIVE
     Dosage: 2 DF, 1X/DAY
     Route: 048
     Dates: start: 20190418, end: 20190918

REACTIONS (2)
  - Syncope [Unknown]
  - Pulmonary embolism [Not Recovered/Not Resolved]

NARRATIVE: CASE EVENT DATE: 20190918
